FAERS Safety Report 9356471 (Version 1)
Quarter: 2013Q2

REPORT INFORMATION
  Report Type: Spontaneous
  Country: FR (occurrence: FR)
  Receive Date: 20130619
  Receipt Date: 20130619
  Transmission Date: 20140414
  Serious: Yes (Hospitalization)
  Sender: FDA-Public Use
  Company Number: FR-UCBSA-025958

PATIENT
  Age: 30 Year
  Sex: Female

DRUGS (4)
  1. KEPPRA [Suspect]
     Indication: EPILEPSY
     Route: 048
     Dates: start: 20091129
  2. LAMICTAL [Suspect]
     Indication: EPILEPSY
     Dosage: 250 MG TO 400 MG
     Route: 048
  3. PANENZA [Concomitant]
     Dates: start: 20091202, end: 20091202
  4. INSULIN [Concomitant]

REACTIONS (4)
  - Caesarean section [Unknown]
  - Pre-eclampsia [Unknown]
  - Premature delivery [Unknown]
  - Exposure during pregnancy [Unknown]
